FAERS Safety Report 9448722 (Version 1)
Quarter: 2013Q3

REPORT INFORMATION
  Report Type: Spontaneous
  Country: US (occurrence: US)
  Receive Date: 20130808
  Receipt Date: 20130808
  Transmission Date: 20140515
  Serious: Yes (Other)
  Sender: FDA-Public Use
  Company Number: US-BAYER-2013-093976

PATIENT
  Age: 54 Year
  Sex: Female
  Weight: 82 kg

DRUGS (2)
  1. BRONKAID [Suspect]
     Indication: ASTHMA
     Dosage: 2 DF, ONCE
     Route: 048
     Dates: start: 20130731, end: 20130731
  2. PERCOCET [Concomitant]

REACTIONS (2)
  - Dyspnoea [Recovered/Resolved]
  - Chest discomfort [Recovered/Resolved]
